FAERS Safety Report 14874723 (Version 2)
Quarter: 2018Q2

REPORT INFORMATION
  Report Type: Spontaneous
  Country: DE (occurrence: DE)
  Receive Date: 20180510
  Receipt Date: 20180521
  Transmission Date: 20180711
  Serious: Yes (Hospitalization)
  Sender: FDA-Public Use
  Company Number: DE-ABBVIE-18P-062-2351650-00

PATIENT
  Age: 46 Year
  Sex: Female

DRUGS (1)
  1. TRENANTONE [Suspect]
     Active Substance: LEUPROLIDE ACETATE
     Indication: MENORRHAGIA
     Dosage: 11.25 MG, UNK
     Route: 065
     Dates: start: 20180502

REACTIONS (5)
  - Adverse drug reaction [Unknown]
  - Dizziness [Unknown]
  - Off label use [Unknown]
  - Vaginal haemorrhage [Recovering/Resolving]
  - Headache [Unknown]

NARRATIVE: CASE EVENT DATE: 20180503
